FAERS Safety Report 5672714-7 (Version None)
Quarter: 2008Q1

REPORT INFORMATION
  Report Type: 
  Country: None (occurrence: None)
  Receive Date: 20080319
  Receipt Date: 20071205
  Transmission Date: 20080703
  Serious: No
  Sender: FDA-Public Use
  Company Number: US-KINGPHARMUSA00001-K200701571

PATIENT

DRUGS (4)
  1. ALTACE [Suspect]
     Indication: ATRIAL FIBRILLATION
     Dosage: 2.5 MG, QD
     Route: 048
     Dates: start: 20070701
  2. ALTACE [Suspect]
     Indication: LOW CARDIAC OUTPUT SYNDROME
  3. ASPIRIN [Concomitant]
     Indication: ANTICOAGULANT THERAPY
     Dosage: UNK, QD
     Route: 048
     Dates: start: 20071101
  4. TOPROL [Concomitant]
     Dosage: 12.5 MG, QD
     Route: 048
     Dates: start: 20070701

REACTIONS (2)
  - COUGH [None]
  - CREATININE URINE DECREASED [None]
